FAERS Safety Report 9036305 (Version 1)
Quarter: 2013Q1

REPORT INFORMATION
  Report Type: Report from Study
  Country: US (occurrence: US)
  Receive Date: 20130129
  Receipt Date: 20130129
  Transmission Date: 20140127
  Serious: No
  Sender: FDA-Public Use
  Company Number: US-ABBOTT-11P-163-0887843-00

PATIENT
  Age: 52 Year
  Sex: Female

DRUGS (12)
  1. HUMIRA 40 MG/0.8 ML PEN [Suspect]
     Indication: RHEUMATOID ARTHRITIS
     Dates: start: 201112
  2. LEVOTHYROXIN [Concomitant]
     Indication: HYPOTHYROIDISM
     Dosage: 1.4 MG DAILY
  3. PLAQUENIL [Concomitant]
     Indication: PRODUCT USED FOR UNKNOWN INDICATION
  4. ZOLOFT [Concomitant]
     Indication: FIBROMYALGIA
     Dosage: 50 MG AT BEDTIME
  5. ZANAFLEX [Concomitant]
     Indication: MUSCLE RELAXANT THERAPY
     Dosage: 4MG; 1-2 PILLS DAILY
  6. CELEBREX [Concomitant]
     Indication: PAIN
     Dosage: 300 MG DAILY
  7. TRAMADOL [Concomitant]
     Indication: PAIN
  8. GABAPENTIN [Concomitant]
     Indication: RHEUMATOID ARTHRITIS
     Dosage: 2-3 TIMES PER DAY AS NEEDED
  9. GABAPENTIN [Concomitant]
     Indication: PAIN
  10. ADVAIR [Concomitant]
     Indication: LUNG DISORDER
     Dosage: 250/50 MG DAILY
  11. ALBUTEROL [Concomitant]
     Indication: LUNG DISORDER
  12. SPIRIVA [Concomitant]
     Indication: LUNG DISORDER

REACTIONS (7)
  - Abdominal pain upper [Not Recovered/Not Resolved]
  - Hyperhidrosis [Unknown]
  - Abdominal pain upper [Not Recovered/Not Resolved]
  - Feeling abnormal [Unknown]
  - Gastric disorder [Unknown]
  - Nasopharyngitis [Unknown]
  - Nasopharyngitis [Not Recovered/Not Resolved]
